FAERS Safety Report 10589005 (Version 2)
Quarter: 2016Q1

REPORT INFORMATION
  Report Type: Spontaneous
  Country: DE (occurrence: DE)
  Receive Date: 20141117
  Receipt Date: 20160204
  Transmission Date: 20160525
  Serious: Yes (Death, Other)
  Sender: FDA-Public Use
  Company Number: PHHY2014DE147708

PATIENT
  Age: 59 Year
  Sex: Female

DRUGS (1)
  1. ALENDRONIC ACID [Suspect]
     Active Substance: ALENDRONIC ACID
     Indication: OSTEOPOROSIS
     Dosage: 70 MG, QW
     Route: 048

REACTIONS (8)
  - Bacterial sepsis [Unknown]
  - Abscess neck [Unknown]
  - Embolism venous [Unknown]
  - Abscess jaw [Unknown]
  - Septic shock [Unknown]
  - Death [Fatal]
  - Multiple organ dysfunction syndrome [Unknown]
  - Osteonecrosis of jaw [Unknown]
